FAERS Safety Report 4550225-X (Version None)
Quarter: 2005Q1

REPORT INFORMATION
  Report Type: 
  Country: None (occurrence: None)
  Receive Date: 20050107
  Receipt Date: 20030328
  Transmission Date: 20050727
  Serious: Yes (Death)
  Sender: FDA-Public Use
  Company Number: 2003IM000349

PATIENT
  Age: 61 Year
  Sex: Female
  Weight: 81.6475 kg

DRUGS (6)
  1. ACTIMMUNE [Suspect]
     Indication: INTERSTITIAL LUNG DISEASE
     Dosage: 200 UG/TIW; SUBCUTANEOUS
     Route: 058
     Dates: start: 20020424, end: 20021206
  2. NORVASC [Concomitant]
  3. PREMARIN [Concomitant]
  4. ATENOLOL [Concomitant]
  5. NITROGLCERIN [Concomitant]
  6. FIORINAL [Concomitant]

REACTIONS (1)
  - FEELING ABNORMAL [None]
